FAERS Safety Report 23995644 (Version 9)
Quarter: 2024Q4

REPORT INFORMATION
  Report Type: Spontaneous
  Country: CA (occurrence: CA)
  Receive Date: 20240620
  Receipt Date: 20241014
  Transmission Date: 20250115
  Serious: Yes (Other)
  Sender: PFIZER
  Company Number: CA-PFIZER INC-202400197066

PATIENT
  Age: 24 Year
  Sex: Female

DRUGS (8)
  1. ABRILADA [Suspect]
     Active Substance: ADALIMUMAB-AFZB
     Indication: Crohn^s disease
     Dosage: 80 MG, WEEKLY
     Route: 058
     Dates: start: 20240611
  2. ABRILADA [Suspect]
     Active Substance: ADALIMUMAB-AFZB
     Dosage: 80 MG, 2 WEEKS AFTER LAST TREATMENT (WHICH TOOK PLACE ON 11JUN2024).
     Route: 058
     Dates: start: 20240625
  3. ABRILADA [Suspect]
     Active Substance: ADALIMUMAB-AFZB
     Dosage: 80MG AFTER (EVERY) 1 WEEKS
     Route: 058
     Dates: start: 20240709
  4. ABRILADA [Suspect]
     Active Substance: ADALIMUMAB-AFZB
     Dosage: 80 MG, WEEKLY
     Route: 058
     Dates: start: 20240716
  5. ABRILADA [Suspect]
     Active Substance: ADALIMUMAB-AFZB
     Dosage: 80 MG, 2 WEEKS AND 1 DAY (PRESCRIBED TREATMENTS ARE EVERY WEEK)
     Route: 058
     Dates: start: 20240731
  6. ABRILADA [Suspect]
     Active Substance: ADALIMUMAB-AFZB
     Dosage: 80 MG, 2 WEEKS AND 6 DAYS (80 MG, WEEKLY)
     Route: 058
     Dates: start: 20240820
  7. ABRILADA [Suspect]
     Active Substance: ADALIMUMAB-AFZB
     Dosage: 80 MG, WEEKLY
     Route: 058
     Dates: start: 20240924
  8. ABRILADA [Suspect]
     Active Substance: ADALIMUMAB-AFZB
     Dosage: 80 MG, 2 WEEKS AFTER LAST TREATMENT
     Route: 058
     Dates: start: 20241008

REACTIONS (4)
  - Pharyngitis streptococcal [Recovering/Resolving]
  - Aphonia [Unknown]
  - Upper respiratory tract infection [Unknown]
  - Inappropriate schedule of product administration [Unknown]

NARRATIVE: CASE EVENT DATE: 20240101
